FAERS Safety Report 23577739 (Version 1)
Quarter: 2024Q1

REPORT INFORMATION
  Report Type: Spontaneous
  Country: CN (occurrence: CN)
  Receive Date: 20240228
  Receipt Date: 20240228
  Transmission Date: 20240409
  Serious: Yes (Other)
  Sender: FDA-Public Use
  Company Number: CN-009507513-2402CHN008448

PATIENT
  Age: 66 Year
  Sex: Female

DRUGS (2)
  1. JANUMET [Suspect]
     Active Substance: METFORMIN HYDROCHLORIDE\SITAGLIPTIN PHOSPHATE
     Indication: Blood glucose abnormal
     Dosage: 1 (50 MG: 850 MG) TABLET, BID
     Route: 048
     Dates: start: 20240201, end: 20240204
  2. EMPAGLIFLOZIN [Concomitant]
     Active Substance: EMPAGLIFLOZIN
     Indication: Blood glucose abnormal
     Dosage: 10 MILLIGRAM, QD
     Route: 048
     Dates: start: 20240131, end: 20240204

REACTIONS (4)
  - Mallory-Weiss syndrome [Unknown]
  - Chronic gastritis [Unknown]
  - Vomiting [Recovering/Resolving]
  - Headache [Recovering/Resolving]

NARRATIVE: CASE EVENT DATE: 20240201
